FAERS Safety Report 19025619 (Version 1)
Quarter: 2021Q1

REPORT INFORMATION
  Report Type: Report from Study
  Country: US (occurrence: US)
  Receive Date: 20210318
  Receipt Date: 20210318
  Transmission Date: 20210420
  Serious: Yes (Hospitalization)
  Sender: FDA-Public Use
  Company Number: US-EISAI MEDICAL RESEARCH-EC-2021-089165

PATIENT
  Age: 70 Year
  Sex: Female

DRUGS (2)
  1. LENVIMA [Suspect]
     Active Substance: LENVATINIB
     Indication: RETROPERITONEAL CANCER
     Route: 048
     Dates: start: 202102, end: 20210311
  2. LENVIMA [Suspect]
     Active Substance: LENVATINIB
     Indication: MALIGNANT PERITONEAL NEOPLASM

REACTIONS (4)
  - Blood magnesium decreased [Unknown]
  - Restless legs syndrome [Unknown]
  - Fatigue [Unknown]
  - Liver function test increased [Unknown]

NARRATIVE: CASE EVENT DATE: 2021
